FAERS Safety Report 9437182 (Version 2)
Quarter: 2013Q4

REPORT INFORMATION
  Report Type: Spontaneous
  Country: FR (occurrence: FR)
  Receive Date: 20130802
  Receipt Date: 20131119
  Transmission Date: 20140711
  Serious: Yes (Hospitalization)
  Sender: FDA-Public Use
  Company Number: PHHY2013FR080703

PATIENT
  Age: 59 Year
  Sex: Male

DRUGS (6)
  1. RIAMET [Suspect]
     Indication: MALARIA
     Dosage: UNK UKN, UNK
     Route: 048
     Dates: start: 20130514, end: 20130517
  2. MALACEF [Suspect]
     Indication: MALARIA
     Dosage: 180 MG, QD
     Route: 042
     Dates: start: 20130511, end: 20130514
  3. CEFOTAXIME [Suspect]
     Indication: PROPHYLAXIS
     Dosage: UNK
     Route: 048
     Dates: start: 20130511, end: 20130513
  4. ATORVASTATIN [Concomitant]
     Indication: HYPERCHOLESTEROLAEMIA
     Dosage: UNK UKN, UNK
  5. SPIRONOLACTONE [Concomitant]
     Indication: HYPERTENSION
     Dosage: UNK
  6. LERCAN [Concomitant]
     Indication: HYPERTENSION
     Dosage: UNK UKN, UNK

REACTIONS (1)
  - Haemolytic anaemia [Recovering/Resolving]
